FAERS Safety Report 5605523-5 (Version None)
Quarter: 2008Q1

REPORT INFORMATION
  Report Type: 
  Country: None (occurrence: None)
  Receive Date: 20080129
  Receipt Date: 20080118
  Transmission Date: 20080703
  Serious: Yes (Other)
  Sender: FDA-Public Use
  Company Number: HQWYE787419MAY05

PATIENT
  Sex: Female

DRUGS (2)
  1. PREMPRO [Suspect]
     Dosage: NOT SPECIFIED
     Route: 048
     Dates: start: 19980101, end: 20021001
  2. PREMARIN [Suspect]
     Dosage: NOT SPECIFIED
     Route: 048
     Dates: start: 19670101, end: 19980101

REACTIONS (1)
  - BREAST CANCER METASTATIC [None]
